FAERS Safety Report 20560654 (Version 1)
Quarter: 2022Q1

REPORT INFORMATION
  Report Type: Spontaneous
  Country: US (occurrence: None)
  Receive Date: 20220306
  Receipt Date: 20220306
  Transmission Date: 20220423
  Serious: Yes (Other)
  Sender: FDA-Public Use
  Company Number: None

PATIENT
  Age: 38 Year
  Sex: Female
  Weight: 112.5 kg

DRUGS (14)
  1. BENADRYL [Suspect]
     Active Substance: DIPHENHYDRAMINE HYDROCHLORIDE
  2. PSEUDOEPHEDRINE [Suspect]
     Active Substance: PSEUDOEPHEDRINE
  3. VICKS NYQUIL [Suspect]
     Active Substance: ACETAMINOPHEN\DEXTROMETHORPHAN HYDROBROMIDE\DOXYLAMINE SUCCINATE
  4. TYLENOL [Suspect]
     Active Substance: ACETAMINOPHEN
  5. UNSPECIFIED INGREDIENT [Suspect]
     Active Substance: UNSPECIFIED INGREDIENT
  6. GINGER [Suspect]
     Active Substance: GINGER
  7. WATER [Suspect]
     Active Substance: WATER
  8. Albuterol inhaler and aerosol [Concomitant]
  9. SINGULAIR [Concomitant]
     Active Substance: MONTELUKAST SODIUM
  10. ZYRTEC [Concomitant]
     Active Substance: CETIRIZINE HYDROCHLORIDE
  11. FLONASE [Concomitant]
     Active Substance: FLUTICASONE PROPIONATE
  12. TUSSIN [Concomitant]
     Active Substance: GUAIFENESIN
  13. MELATONIN [Concomitant]
     Active Substance: MELATONIN
  14. IBUPROFEN [Concomitant]
     Active Substance: IBUPROFEN

REACTIONS (6)
  - Vomiting [None]
  - Nausea [None]
  - Pyrexia [None]
  - Chills [None]
  - Asthenia [None]
  - Malaise [None]

NARRATIVE: CASE EVENT DATE: 20220301
